FAERS Safety Report 16132141 (Version 3)
Quarter: 2019Q1

REPORT INFORMATION
  Report Type: Spontaneous
  Country: ES (occurrence: ES)
  Receive Date: 20190329
  Receipt Date: 20190330
  Transmission Date: 20190418
  Serious: Yes (Other)
  Sender: FDA-Public Use
  Company Number: ES-ACCORD-116715

PATIENT
  Age: 88 Year
  Sex: Female

DRUGS (2)
  1. LEVOMEPROMAZINE [Interacting]
     Active Substance: LEVOMEPROMAZINE
     Indication: PRODUCT USED FOR UNKNOWN INDICATION
     Route: 048
     Dates: start: 201812, end: 20181212
  2. QUETIAPINE. [Suspect]
     Active Substance: QUETIAPINE
     Indication: PRODUCT USED FOR UNKNOWN INDICATION
     Route: 048
     Dates: start: 201812, end: 20181212

REACTIONS (5)
  - Incorrect dose administered [Unknown]
  - Confusional state [Unknown]
  - Somnolence [Unknown]
  - Drug interaction [Unknown]
  - Agitation [Unknown]

NARRATIVE: CASE EVENT DATE: 201812
